FAERS Safety Report 12238440 (Version 1)
Quarter: 2016Q2

REPORT INFORMATION
  Report Type: Spontaneous
  Country: US (occurrence: None)
  Receive Date: 20160404
  Receipt Date: 20160404
  Transmission Date: 20160815
  Serious: No
  Sender: FDA-Public Use
  Company Number: None

PATIENT
  Sex: Male

DRUGS (4)
  1. LIDOCAINE 2% WITH EPINEPHRINE [Concomitant]
  2. AMBIEN [Concomitant]
     Active Substance: ZOLPIDEM TARTRATE
  3. CYMBALTA [Concomitant]
     Active Substance: DULOXETINE HYDROCHLORIDE
  4. KYBELLA [Suspect]
     Active Substance: DEOXYCHOLIC ACID
     Dosage: SEE NARRATIVE   25 0.2 ML INJECTIONS SPACED 1 CM APART  3 DOSES SUBCUTANEOUS
     Route: 058

REACTIONS (4)
  - Oedema [None]
  - Alopecia [None]
  - Hypoaesthesia [None]
  - Tenderness [None]
